FAERS Safety Report 6731581-0 (Version None)
Quarter: 2010Q2

REPORT INFORMATION
  Report Type: 
  Country: None (occurrence: None)
  Receive Date: 20100513
  Receipt Date: 20100513
  Transmission Date: 20101027
  Serious: Yes (Hospitalization)
  Sender: FDA-Public Use
  Company Number: None

PATIENT
  Sex: Female
  Weight: 110 kg

DRUGS (2)
  1. CARBOPLATIN [Suspect]
     Dosage: 446 MG
  2. TAXOL [Suspect]
     Dosage: 350 MG

REACTIONS (4)
  - ABDOMINAL ABSCESS [None]
  - FEBRILE NEUTROPENIA [None]
  - MENTAL STATUS CHANGES [None]
  - RENAL FAILURE ACUTE [None]
